FAERS Safety Report 24369006 (Version 1)
Quarter: 2024Q3

REPORT INFORMATION
  Report Type: Spontaneous
  Country: MY (occurrence: MY)
  Receive Date: 20240927
  Receipt Date: 20240927
  Transmission Date: 20241017
  Serious: Yes (Hospitalization, Disabling, Other)
  Sender: AMNEAL
  Company Number: MY-AMNEAL PHARMACEUTICALS-2024-AMRX-03499

PATIENT
  Age: 68 Year
  Sex: Male

DRUGS (1)
  1. DICLOFENAC SODIUM [Suspect]
     Active Substance: DICLOFENAC\DICLOFENAC SODIUM
     Indication: Renal colic
     Dosage: FEW INJECTIONS
     Route: 030

REACTIONS (3)
  - Cutaneous vasculitis [Recovered/Resolved]
  - Gangrene [Recovered/Resolved with Sequelae]
  - Cyanosis [Recovered/Resolved]
